FAERS Safety Report 8146004-7 (Version None)
Quarter: 2012Q1

REPORT INFORMATION
  Report Type: 
  Country: None (occurrence: None)
  Receive Date: 20120217
  Receipt Date: 20110708
  Transmission Date: 20120608
  Serious: No
  Sender: FDA-Public Use
  Company Number: US-ABBOTT-11P-163-0837538-00

PATIENT
  Sex: Male

DRUGS (4)
  1. HYDROCHLOROTHIAZIDE [Concomitant]
     Indication: PRODUCT USED FOR UNKNOWN INDICATION
  2. SIMCOR [Suspect]
     Indication: HIGH DENSITY LIPOPROTEIN DECREASED
  3. ASPIRIN [Concomitant]
     Indication: PRODUCT USED FOR UNKNOWN INDICATION
  4. SIMCOR [Suspect]
     Indication: BLOOD CHOLESTEROL INCREASED
     Dosage: 500/20MG AT BEDTIME
     Dates: start: 20100101, end: 20110707

REACTIONS (7)
  - FLUSHING [None]
  - LIPIDS ABNORMAL [None]
  - PARAESTHESIA [None]
  - ERYTHEMA [None]
  - GLUCOSE TOLERANCE IMPAIRED [None]
  - BLOOD CHOLESTEROL INCREASED [None]
  - HIGH DENSITY LIPOPROTEIN DECREASED [None]
